FAERS Safety Report 8722163 (Version 3)
Quarter: 2012Q4

REPORT INFORMATION
  Report Type: 
  Country: IT (occurrence: IT)
  Receive Date: 20120814
  Receipt Date: 20121005
  Transmission Date: 20130627
  Serious: Yes (Death, Life-Threatening)
  Sender: FDA-Public Use
  Company Number: IT-CELGENEUS-083-21880-12080897

PATIENT
  Age: 70 Year
  Sex: Male

DRUGS (2)
  1. REVLIMID [Suspect]
     Indication: MULTIPLE MYELOMA
     Dosage: 25 Milligram
     Route: 048
     Dates: start: 20120423, end: 20120502
  2. NEBIVOLOL [Concomitant]
     Indication: HYPERTENSION ARTERIAL
     Route: 065

REACTIONS (3)
  - Plasma cell myeloma [Fatal]
  - Sepsis [Fatal]
  - Multi-organ failure [Not Recovered/Not Resolved]
